FAERS Safety Report 16587775 (Version 1)
Quarter: 2019Q3

REPORT INFORMATION
  Report Type: Spontaneous
  Country: JP (occurrence: JP)
  Receive Date: 20190717
  Receipt Date: 20190717
  Transmission Date: 20191004
  Serious: Yes (Hospitalization, Other)
  Sender: FDA-Public Use
  Company Number: JP-SA-2019SA192837

PATIENT
  Age: 74 Year
  Sex: Male

DRUGS (6)
  1. OXALIPLATIN. [Suspect]
     Active Substance: OXALIPLATIN
  2. OTERACIL [Suspect]
     Active Substance: OTERACIL
  3. FLUOROURACIL. [Suspect]
     Active Substance: FLUOROURACIL
  4. GIMERACIL [Suspect]
     Active Substance: GIMERACIL
  5. TRASTUZUMAB. [Suspect]
     Active Substance: TRASTUZUMAB
  6. TEGAFUR [Suspect]
     Active Substance: TEGAFUR

REACTIONS (5)
  - Cognitive disorder [Recovered/Resolved]
  - Decreased appetite [Unknown]
  - Altered state of consciousness [Recovered/Resolved]
  - Vitamin B1 decreased [Recovered/Resolved]
  - Diarrhoea [Unknown]
